FAERS Safety Report 25171394 (Version 1)
Quarter: 2025Q2

REPORT INFORMATION
  Report Type: Spontaneous
  Country: GB (occurrence: GB)
  Receive Date: 20250408
  Receipt Date: 20250408
  Transmission Date: 20250716
  Serious: Yes (Other)
  Sender: TEVA
  Company Number: GB-MHRA-TPP23158324C6216586YC1743433868634

PATIENT
  Age: 88 Year
  Sex: Female
  Weight: 51 kg

DRUGS (12)
  1. RAMIPRIL [Suspect]
     Active Substance: RAMIPRIL
     Indication: Hypertension
     Route: 048
     Dates: start: 20240805, end: 20250319
  2. CLOBETASOL PROPIONATE [Concomitant]
     Active Substance: CLOBETASOL PROPIONATE
     Indication: Ill-defined disorder
     Route: 061
     Dates: start: 20240805
  3. EPIMAX ISOMOL [Concomitant]
     Indication: Ill-defined disorder
     Route: 065
     Dates: start: 20240805
  4. CLOBETASOL [Concomitant]
     Active Substance: CLOBETASOL
     Indication: Ill-defined disorder
     Route: 061
     Dates: start: 20240805
  5. AMLODIPINE [Concomitant]
     Active Substance: AMLODIPINE BESYLATE
     Indication: Hypertension
     Route: 048
     Dates: start: 20250128
  6. NITROFURANTOIN [Concomitant]
     Active Substance: NITROFURANTOIN
     Indication: Ill-defined disorder
     Dosage: FEMALE PATIENTS
     Route: 048
     Dates: start: 20250210, end: 20250213
  7. MACROGOL COMPOUND [Concomitant]
     Indication: Ill-defined disorder
     Dosage: TO BE TAKEN TWICE DAILY OR MORE IF NEEDED
     Route: 048
     Dates: start: 20241014
  8. BETAMETHASONE SODIUM PHOSPHATE [Concomitant]
     Active Substance: BETAMETHASONE SODIUM PHOSPHATE
     Indication: Ill-defined disorder
     Route: 065
     Dates: start: 20240805
  9. ADCAL [Concomitant]
     Indication: Ill-defined disorder
     Route: 048
     Dates: start: 20240805
  10. CIPROFLOXACIN [Concomitant]
     Active Substance: CIPROFLOXACIN
     Indication: Ill-defined disorder
     Dosage: FOR 3 DAYS
     Route: 048
     Dates: start: 20250212, end: 20250215
  11. MEBEVERINE HYDROCHLORIDE [Concomitant]
     Active Substance: MEBEVERINE HYDROCHLORIDE
     Indication: Ill-defined disorder
     Route: 048
     Dates: start: 20240805
  12. LATANOPROST [Concomitant]
     Active Substance: LATANOPROST
     Indication: Ill-defined disorder
     Dosage: INTO BOTH EYES AT NIGHT
     Route: 065
     Dates: start: 20240805

REACTIONS (1)
  - Lip swelling [Recovered/Resolved]

NARRATIVE: CASE EVENT DATE: 20250319
